FAERS Safety Report 18439129 (Version 6)
Quarter: 2020Q4

REPORT INFORMATION
  Report Type: Report from Study
  Country: US (occurrence: US)
  Receive Date: 20201028
  Receipt Date: 20201215
  Transmission Date: 20210114
  Serious: Yes (Hospitalization)
  Sender: FDA-Public Use
  Company Number: US-GILEAD-2020-0501671

PATIENT
  Age: 77 Year
  Sex: Female
  Weight: 59.41 kg

DRUGS (31)
  1. SENNA [SENNA ALEXANDRINA] [Concomitant]
     Active Substance: SENNA LEAF
  2. TIOTROPIUM BROMIDE [Concomitant]
     Active Substance: TIOTROPIUM BROMIDE
  3. METFORMIN [Concomitant]
     Active Substance: METFORMIN HYDROCHLORIDE
  4. ACETAMINOPHEN. [Concomitant]
     Active Substance: ACETAMINOPHEN
  5. ASPIRIN [ACETYLSALICYLIC ACID] [Concomitant]
     Active Substance: ASPIRIN
  6. GUAIFENESIN + CODEINE [Concomitant]
  7. ENOXAPARIN [Concomitant]
     Active Substance: ENOXAPARIN
  8. POLYETHYLENE GLYCOL 3350. [Concomitant]
     Active Substance: POLYETHYLENE GLYCOL 3350
  9. GLUCOSE [Concomitant]
     Active Substance: DEXTROSE
  10. ONDANSETRON [Concomitant]
     Active Substance: ONDANSETRON
  11. BUPROPION. [Concomitant]
     Active Substance: BUPROPION
  12. FOLIC ACID. [Concomitant]
     Active Substance: FOLIC ACID
  13. PITAVASTATIN CALCIUM [Concomitant]
     Active Substance: PITAVASTATIN CALCIUM
  14. EMPAGLIFLOZIN [Concomitant]
     Active Substance: EMPAGLIFLOZIN
  15. NATEGLINIDE. [Concomitant]
     Active Substance: NATEGLINIDE
  16. BLINDED INTERFERON BETA-1A [Suspect]
     Active Substance: INTERFERON BETA-1A
     Indication: COVID-19
     Dosage: UNK
     Route: 058
     Dates: start: 20201013, end: 20201017
  17. INSULIN GLARGINE BIOMEP [Concomitant]
     Active Substance: INSULIN GLARGINE
  18. REMDESIVIR. [Suspect]
     Active Substance: REMDESIVIR
     Indication: COVID-19
     Dosage: UNK
     Route: 042
     Dates: start: 20201013, end: 20201017
  19. GLUCAGON. [Concomitant]
     Active Substance: GLUCAGON
  20. LEVOTHYROXINE. [Concomitant]
     Active Substance: LEVOTHYROXINE
  21. BISACODYL ACTAVIS [Concomitant]
  22. MAGNESIUM HYDROXIDE;SIMETHICONE [Concomitant]
  23. LIDOCAINE. [Concomitant]
     Active Substance: LIDOCAINE
  24. ERGOCALCIFEROL;RETINOL [Concomitant]
  25. DIPHENHYDRAMINE. [Concomitant]
     Active Substance: DIPHENHYDRAMINE
  26. BENZONATATE. [Concomitant]
     Active Substance: BENZONATATE
  27. INSULIN LISPRO DCI [Concomitant]
  28. PLACEBO [Suspect]
     Active Substance: UNSPECIFIED INGREDIENT
     Indication: COVID-19
     Dosage: UNK
     Route: 058
     Dates: start: 20201013, end: 20201017
  29. DOCUSATE CALCIUM. [Concomitant]
     Active Substance: DOCUSATE CALCIUM
  30. LOSARTAN. [Concomitant]
     Active Substance: LOSARTAN
  31. PREDNISONE. [Concomitant]
     Active Substance: PREDNISONE

REACTIONS (1)
  - Aspartate aminotransferase increased [Recovered/Resolved]

NARRATIVE: CASE EVENT DATE: 20201018
